FAERS Safety Report 8546195-X (Version None)
Quarter: 2012Q3

REPORT INFORMATION
  Report Type: 
  Country: None (occurrence: None)
  Receive Date: 20120727
  Receipt Date: 20120724
  Transmission Date: 20120928
  Serious: Yes (Death, Other)
  Sender: FDA-Public Use
  Company Number: PHHY2012JP064037

PATIENT
  Sex: Female
  Weight: 81 kg

DRUGS (2)
  1. CARBAMAZEPINE [Suspect]
     Indication: ANALGESIC THERAPY
     Dosage: 200 MG, UDAILY
     Route: 048
  2. DICLOFENAC [Suspect]
     Indication: ANALGESIC THERAPY
     Dosage: 100 MG, DAILY

REACTIONS (3)
  - PNEUMONIA [None]
  - SOMNOLENCE [None]
  - METASTASES TO SPINE [None]
